FAERS Safety Report 9753667 (Version 1)
Quarter: 2013Q4

REPORT INFORMATION
  Report Type: Spontaneous
  Country: US (occurrence: US)
  Receive Date: 20131213
  Receipt Date: 20131213
  Transmission Date: 20140711
  Serious: No
  Sender: FDA-Public Use
  Company Number: US-GILEAD-2009-0026036

PATIENT
  Age: 55 Year
  Sex: Male

DRUGS (8)
  1. LETAIRIS [Suspect]
     Indication: PULMONARY ARTERIAL HYPERTENSION
     Route: 048
     Dates: start: 20091002
  2. CADUET [Concomitant]
  3. FLOMAX [Concomitant]
  4. REVATIO [Concomitant]
  5. BYSTOLIC [Concomitant]
  6. PROTONIX [Concomitant]
  7. AVODART [Concomitant]
  8. ASPIRIN [Concomitant]

REACTIONS (1)
  - Red blood cell count decreased [Not Recovered/Not Resolved]
